FAERS Safety Report 8559173-1 (Version None)
Quarter: 2012Q3

REPORT INFORMATION
  Report Type: 
  Country: None (occurrence: None)
  Receive Date: 20120720
  Receipt Date: 20120709
  Transmission Date: 20120928
  Serious: Yes (Life-Threatening, Hospitalization, Other)
  Sender: FDA-Public Use
  Company Number: 1346014

PATIENT
  Age: 59 Year
  Sex: Female

DRUGS (7)
  1. (SPASFON) [Concomitant]
  2. ACETAMINOPHEN AND TRAMADOL HCL [Concomitant]
  3. ACTIVELLE [Concomitant]
  4. (BROMAZEPAM) [Concomitant]
  5. (TETRAZEPAM) [Concomitant]
  6. VALSARTAN  AND HYDROCHLOROTHIAZIDE [Concomitant]
  7. PENTOSTATIN [Suspect]
     Indication: HAIRY CELL LEUKAEMIA
     Dosage: 0.2857 MG/M^2 (4 MG/M^2, 1 IN 14 DAYS)
     Dates: start: 20021222, end: 20030522

REACTIONS (4)
  - HEPATOMEGALY [None]
  - BILE DUCT CANCER NON-RESECTABLE [None]
  - METASTASES TO LUNG [None]
  - METASTASES TO LIVER [None]
